FAERS Safety Report 4788093-3 (Version None)
Quarter: 2005Q4

REPORT INFORMATION
  Report Type: 
  Country: None (occurrence: None)
  Receive Date: 20051003
  Receipt Date: 20050921
  Transmission Date: 20060501
  Serious: Yes (Hospitalization, Other)
  Sender: FDA-Public Use
  Company Number: 2000-07-0774

PATIENT
  Age: 23 Year
  Sex: Male
  Weight: 64 kg

DRUGS (5)
  1. INTRON A [Suspect]
     Indication: CHRONIC MYELOID LEUKAEMIA
     Dosage: 3-10 MU QD
     Dates: start: 19990109, end: 19990625
  2. FOLIGAN TABLETS [Concomitant]
  3. LITALIR TABLETS [Concomitant]
  4. ACETAMINOPHEN [Concomitant]
  5. ALEXAN INJECTABLE [Concomitant]

REACTIONS (5)
  - BONE MARROW TRANSPLANT [None]
  - PULMONARY CONGESTION [None]
  - PULMONARY HYPERTENSION [None]
  - RIGHT VENTRICULAR FAILURE [None]
  - VENTRICULAR HYPERTROPHY [None]
